FAERS Safety Report 5371373-0 (Version None)
Quarter: 2007Q2

REPORT INFORMATION
  Report Type: 
  Country: None (occurrence: None)
  Receive Date: 20070626
  Receipt Date: 20070531
  Transmission Date: 20071010
  Serious: Yes (Death, Hospitalization)
  Sender: FDA-Public Use
  Company Number: BE-MERCK-0706BEL00005

PATIENT
  Age: 82 Year
  Sex: Female

DRUGS (11)
  1. LISINOPRIL [Concomitant]
     Indication: HYPERTENSION
     Route: 048
  2. CELIPROLOL HYDROCHLORIDE [Concomitant]
     Route: 048
  3. FUROSEMIDE [Concomitant]
     Route: 048
  4. CITALOPRAM [Concomitant]
     Route: 065
  5. ESOMEPRAZOLE [Concomitant]
     Route: 065
  6. VITAMINS (UNSPECIFIED) [Concomitant]
     Route: 065
  7. MAGNESIUM (UNSPECIFIED) [Concomitant]
     Route: 065
  8. FOSAMAX [Suspect]
     Indication: PROPHYLAXIS
     Route: 048
  9. CALCIUM (UNSPECIFIED) [Suspect]
     Route: 065
  10. VITAMIN D (UNSPECIFIED) [Suspect]
     Route: 065
  11. METHYLPREDNISOLONE [Concomitant]
     Route: 065

REACTIONS (1)
  - CALCIPHYLAXIS [None]
